FAERS Safety Report 7685447-2 (Version None)
Quarter: 2011Q3

REPORT INFORMATION
  Report Type: 
  Country: None (occurrence: None)
  Receive Date: 20110816
  Receipt Date: 20110809
  Transmission Date: 20111222
  Serious: Yes (Other)
  Sender: FDA-Public Use
  Company Number: US-PFIZER INC-2011183798

PATIENT

DRUGS (1)
  1. PREMPRO [Suspect]

REACTIONS (6)
  - COGNITIVE DISORDER [None]
  - HYPOAESTHESIA [None]
  - TRANSIENT ISCHAEMIC ATTACK [None]
  - LOSS OF CONSCIOUSNESS [None]
  - SENSATION OF HEAVINESS [None]
  - FEELING ABNORMAL [None]
